FAERS Safety Report 12715531 (Version 1)
Quarter: 2016Q3

REPORT INFORMATION
  Report Type: Report from Study
  Country: NL (occurrence: NL)
  Receive Date: 20160906
  Receipt Date: 20160906
  Transmission Date: 20161109
  Serious: Yes (Hospitalization, Other)
  Sender: FDA-Public Use
  Company Number: NL-AMGEN-NLDSL2016114896

PATIENT
  Age: 68 Year
  Sex: Female

DRUGS (9)
  1. CEFTRIAXON [Concomitant]
     Active Substance: CEFTRIAXONE
     Dosage: 2000 MG, UNK
     Dates: start: 20160827
  2. DALTEPARINE SODIQUE [Concomitant]
     Dosage: UNK
     Dates: start: 20160827
  3. METOPROLOL. [Concomitant]
     Active Substance: METOPROLOL
     Dosage: 100 MG, UNK
     Dates: start: 20160827
  4. PANTOPRAZOL [Concomitant]
     Active Substance: PANTOPRAZOLE SODIUM
     Dosage: 40 MG, UNK
     Dates: start: 20160828
  5. CALCIUMCARBONAAT [Concomitant]
     Dosage: UNK
     Dates: start: 20150612
  6. PARACETAMOL [Concomitant]
     Active Substance: ACETAMINOPHEN
     Dosage: 500 MG, UNK
     Dates: start: 20160827
  7. MORFINE [Concomitant]
     Active Substance: MORPHINE
     Dosage: 10 MG/ML, UNK
     Dates: start: 20160827
  8. XGEVA [Suspect]
     Active Substance: DENOSUMAB
     Indication: PRODUCT USED FOR UNKNOWN INDICATION
     Dosage: 120 MG, Q4WK
     Route: 058
     Dates: start: 20150612
  9. METRONIDAZOL [Concomitant]
     Active Substance: METRONIDAZOLE
     Dosage: 5 MG/ML, UNK
     Dates: start: 20160827

REACTIONS (6)
  - Bile duct stenosis [Unknown]
  - Hyponatraemia [Unknown]
  - Breast cancer [Unknown]
  - Pyrexia [Unknown]
  - Abdominal pain upper [Unknown]
  - Tremor [Unknown]

NARRATIVE: CASE EVENT DATE: 20160814
